FAERS Safety Report 4682722-0 (Version None)
Quarter: 2005Q2

REPORT INFORMATION
  Report Type: 
  Country: None (occurrence: None)
  Receive Date: 20050602
  Receipt Date: 20050420
  Transmission Date: 20051028
  Serious: No
  Sender: FDA-Public Use
  Company Number: USA050496209

PATIENT
  Age: 76 Year
  Sex: Male

DRUGS (3)
  1. CYMBALTA [Suspect]
     Indication: NEUROPATHY
     Dosage: 60 MG/1 DAY
     Dates: start: 20050201
  2. HIGH BLOOD PRESSURE MEDICATION [Concomitant]
  3. ZANTAC [Concomitant]

REACTIONS (2)
  - ANXIETY [None]
  - DEPRESSION [None]
